FAERS Safety Report 17276657 (Version 1)
Quarter: 2020Q1

REPORT INFORMATION
  Report Type: Spontaneous
  Country: ES (occurrence: ES)
  Receive Date: 20200116
  Receipt Date: 20200116
  Transmission Date: 20200409
  Serious: Yes (Death, Other)
  Sender: FDA-Public Use
  Company Number: ES-ASTRAZENECA-2020SE07081

PATIENT
  Age: 93 Year
  Sex: Female
  Weight: 50.5 kg

DRUGS (8)
  1. SEVIKAR [Concomitant]
     Active Substance: AMLODIPINE BESYLATE\OLMESARTAN MEDOXOMIL
     Indication: ESSENTIAL HYPERTENSION
     Route: 065
     Dates: start: 20110711
  2. SERTRALINE [Concomitant]
     Active Substance: SERTRALINE HYDROCHLORIDE
     Indication: ANXIETY
     Dosage: HALF A TABLET EVERY DAY
     Dates: start: 20170227
  3. METFORMINA KERN PHARMA [Concomitant]
     Indication: TYPE 2 DIABETES MELLITUS
     Route: 065
     Dates: start: 20120410
  4. FORXIGA [Suspect]
     Active Substance: DAPAGLIFLOZIN
     Indication: TYPE 2 DIABETES MELLITUS
     Route: 048
     Dates: start: 20190213
  5. ATORVASTATINA [Concomitant]
     Active Substance: ATORVASTATIN
     Indication: TYPE IIA HYPERLIPIDAEMIA
     Route: 065
     Dates: start: 20140107
  6. DEPRAX [Concomitant]
     Indication: SENILE DEMENTIA
     Dosage: HALF A TABLET EVERY DAY
     Route: 065
     Dates: start: 20190130
  7. TRAJENTA [Concomitant]
     Active Substance: LINAGLIPTIN
     Indication: TYPE 2 DIABETES MELLITUS
     Route: 065
     Dates: start: 20180226
  8. SOMAZINA [Concomitant]
     Active Substance: CITICOLINE
     Indication: AMNESIA
     Route: 048
     Dates: start: 20180216

REACTIONS (1)
  - Urinary tract infection [Fatal]

NARRATIVE: CASE EVENT DATE: 20191107
